FAERS Safety Report 9691162 (Version 2)
Quarter: 2013Q4

REPORT INFORMATION
  Report Type: Spontaneous
  Country: TH (occurrence: TH)
  Receive Date: 20131115
  Receipt Date: 20131212
  Transmission Date: 20140711
  Serious: Yes (Other)
  Sender: FDA-Public Use
  Company Number: TH-BRISTOL-MYERS SQUIBB COMPANY-19798792

PATIENT
  Age: 60 Year
  Sex: Male
  Weight: 123 kg

DRUGS (8)
  1. KOMBIGLYZE XR [Suspect]
     Indication: TYPE 2 DIABETES MELLITUS
     Dosage: KOMBIGLYZA (5/1000)
     Dates: start: 20130529, end: 20130729
  2. GLUCOPHAGE [Suspect]
     Dosage: 1 DF =GLUCOPHAGE 850
  3. AMARYL [Suspect]
     Dosage: 1DF-2 UNITS NOS
  4. LANTUS [Suspect]
     Dosage: LANTUS 24 U ?1DF-20U
     Route: 058
  5. ASA [Suspect]
     Dosage: (81) 1X1
  6. METOPROLOL [Suspect]
     Dosage: 1DF=100 UNITS NOS?FREQUNECY-1-0-0.5
  7. SIMVASTATIN [Suspect]
     Dosage: (20) 1X1
  8. ISOSORBIDE MONONITRATE [Concomitant]

REACTIONS (1)
  - Cardiac failure chronic [Recovered/Resolved]
